FAERS Safety Report 16573170 (Version 4)
Quarter: 2019Q3

REPORT INFORMATION
  Report Type: Spontaneous
  Country: US (occurrence: US)
  Receive Date: 20190715
  Receipt Date: 20190927
  Transmission Date: 20191004
  Serious: Yes (Other)
  Sender: FDA-Public Use
  Company Number: US-LEXICON PHARMACEUTICALS, INC-19-1606-00681

PATIENT
  Sex: Female

DRUGS (4)
  1. LASIX [Concomitant]
     Active Substance: FUROSEMIDE
  2. SANDOSTATIN [Concomitant]
     Active Substance: OCTREOTIDE ACETATE
     Indication: PRODUCT USED FOR UNKNOWN INDICATION
     Route: 065
  3. TELOTRISTAT ETHYL [Suspect]
     Active Substance: TELOTRISTAT ETHYL
     Indication: CARCINOID TUMOUR OF THE SMALL BOWEL
     Route: 048
     Dates: start: 20190503
  4. SULFATINIB [Suspect]
     Active Substance: SURUFATINIB
     Indication: PRODUCT USED FOR UNKNOWN INDICATION

REACTIONS (14)
  - Constipation [Not Recovered/Not Resolved]
  - Diarrhoea [Unknown]
  - Increased tendency to bruise [Unknown]
  - Decreased appetite [Unknown]
  - Malaise [Not Recovered/Not Resolved]
  - Bone pain [Unknown]
  - Nausea [Not Recovered/Not Resolved]
  - Metastases to liver [Not Recovered/Not Resolved]
  - Insomnia [Not Recovered/Not Resolved]
  - Flatulence [Not Recovered/Not Resolved]
  - Hepatic necrosis [Not Recovered/Not Resolved]
  - White blood cell count decreased [Not Recovered/Not Resolved]
  - Abdominal pain [Unknown]
  - Fatigue [Not Recovered/Not Resolved]
